FAERS Safety Report 13860056 (Version 4)
Quarter: 2018Q3

REPORT INFORMATION
  Report Type: Report from Study
  Country: None (occurrence: BR)
  Receive Date: 20170811
  Receipt Date: 20180925
  Transmission Date: 20181010
  Serious: Yes (Other)
  Sender: FDA-Public Use
  Company Number: BR-ABBVIE-17K-020-2062797-00

PATIENT
  Age: 62 Year
  Sex: Female
  Weight: 79 kg

DRUGS (6)
  1. METHOTREXATE. [Concomitant]
     Active Substance: METHOTREXATE
     Indication: RHEUMATOID ARTHRITIS
  2. DIAZEPAM. [Concomitant]
     Active Substance: DIAZEPAM
     Indication: INSOMNIA
  3. HUMIRA [Suspect]
     Active Substance: ADALIMUMAB
     Indication: RHEUMATOID ARTHRITIS
     Route: 058
     Dates: start: 20120603, end: 20170324
  4. AMITRIPTYLINE [Concomitant]
     Active Substance: AMITRIPTYLINE
     Indication: SCIATICA
  5. VERTIX [Concomitant]
     Indication: LABYRINTHITIS
     Dosage: 1 UNKNOWN
  6. HUMIRA [Suspect]
     Active Substance: ADALIMUMAB
     Route: 058
     Dates: start: 201808

REACTIONS (26)
  - Heart rate increased [Recovering/Resolving]
  - Lung cyst [Recovering/Resolving]
  - Nodule [Unknown]
  - Cardiac disorder [Unknown]
  - Blood pressure fluctuation [Unknown]
  - Loss of personal independence in daily activities [Unknown]
  - Cough [Not Recovered/Not Resolved]
  - Cardiac steatosis [Not Recovered/Not Resolved]
  - Pulmonary fibrosis [Unknown]
  - Aortic arteriosclerosis [Not Recovered/Not Resolved]
  - Dyspnoea [Not Recovered/Not Resolved]
  - Pulmonary haemorrhage [Recovering/Resolving]
  - Neoplasm [Unknown]
  - Lymphadenopathy [Not Recovered/Not Resolved]
  - Malaise [Unknown]
  - Coronary artery disease [Unknown]
  - Lymphadenopathy [Recovering/Resolving]
  - Emphysema [Unknown]
  - Neoplasm malignant [Unknown]
  - Fatigue [Recovering/Resolving]
  - Blood pressure increased [Recovering/Resolving]
  - Cardiac dysfunction [Recovering/Resolving]
  - Hypertension [Recovering/Resolving]
  - Dizziness [Unknown]
  - Upper respiratory tract congestion [Not Recovered/Not Resolved]
  - Rheumatoid factor increased [Recovered/Resolved]

NARRATIVE: CASE EVENT DATE: 201704
